FAERS Safety Report 4879331-7 (Version None)
Quarter: 2006Q1

REPORT INFORMATION
  Report Type: 
  Country: None (occurrence: None)
  Receive Date: 20060112
  Receipt Date: 20060105
  Transmission Date: 20060701
  Serious: Yes (Hospitalization)
  Sender: FDA-Public Use
  Company Number: AU-MERCK-0601AUS00061

PATIENT
  Age: 74 Year
  Sex: Female

DRUGS (11)
  1. FOSAMAX [Suspect]
     Indication: OSTEOPOROSIS
     Route: 048
     Dates: start: 20030101, end: 20051223
  2. ASPIRIN [Concomitant]
     Indication: CEREBROVASCULAR ACCIDENT PROPHYLAXIS
     Route: 048
  3. VITAMINS (UNSPECIFIED) [Concomitant]
     Route: 048
     Dates: start: 20051201
  4. IRON (UNSPECIFIED) [Concomitant]
     Route: 048
     Dates: start: 20051201
  5. UBIDECARENONE [Concomitant]
     Route: 048
  6. TIOTROPIUM BROMIDE [Concomitant]
     Indication: ASTHMA
     Route: 055
  7. FLUTICASONE PROPIONATE AND SALMETEROL XINAFOATE [Concomitant]
     Indication: ASTHMA
     Route: 055
  8. ALBUTEROL SULFATE [Concomitant]
     Indication: ASTHMA
     Route: 065
  9. LISINOPRIL [Concomitant]
     Indication: CARDIAC DISORDER
     Route: 048
  10. OMEGA-3 MARINE TRIGLYCERIDES [Concomitant]
     Indication: BLOOD CHOLESTEROL ABNORMAL
     Route: 048
  11. ESOMEPRAZOLE MAGNESIUM [Concomitant]
     Route: 065

REACTIONS (3)
  - DYSPHONIA [None]
  - FOREIGN BODY TRAUMA [None]
  - HYPERTENSION [None]
